FAERS Safety Report 18388204 (Version 1)
Quarter: 2020Q4

REPORT INFORMATION
  Report Type: Spontaneous
  Country: US (occurrence: US)
  Receive Date: 20201015
  Receipt Date: 20201015
  Transmission Date: 20210114
  Serious: Yes (Other)
  Sender: FDA-Public Use
  Company Number: US-PFIZER INC-2020390894

PATIENT
  Age: 34 Year
  Sex: Female

DRUGS (4)
  1. DOXEPIN [Concomitant]
     Active Substance: DOXEPIN
     Indication: ANXIETY
     Dosage: 150 MG, H.S.
  2. ALPRAZOLAM. [Suspect]
     Active Substance: ALPRAZOLAM
     Indication: ANXIETY
     Dosage: 1.0 MG, 2X/DAY
  3. ALPRAZOLAM. [Suspect]
     Active Substance: ALPRAZOLAM
     Dosage: 1.0 MG, 2X/DAY
  4. ALPRAZOLAM. [Suspect]
     Active Substance: ALPRAZOLAM
     Dosage: 1 MG, 3X/DAY

REACTIONS (2)
  - Physical assault [Recovered/Resolved]
  - Hostility [Recovered/Resolved]
